FAERS Safety Report 8285341-2 (Version None)
Quarter: 2012Q2

REPORT INFORMATION
  Report Type: 
  Country: None (occurrence: None)
  Receive Date: 20120413
  Receipt Date: 20120223
  Transmission Date: 20120825
  Serious: No
  Sender: FDA-Public Use
  Company Number: US-ASTRAZENECA-2012SE12773

PATIENT
  Age: 36 Year
  Sex: Male

DRUGS (1)
  1. NEXIUM [Suspect]
     Route: 048

REACTIONS (5)
  - NAUSEA [None]
  - EYE PAIN [None]
  - VISION BLURRED [None]
  - DRUG INEFFECTIVE [None]
  - PANIC ATTACK [None]
